FAERS Safety Report 8911978 (Version 2)
Quarter: 2013Q1

REPORT INFORMATION
  Report Type: Spontaneous
  Country: GB (occurrence: GB)
  Receive Date: 20121115
  Receipt Date: 20130115
  Transmission Date: 20140127
  Serious: Yes (Other)
  Sender: FDA-Public Use
  Company Number: GB-MERCK-1209GBR011744

PATIENT
  Age: 71 Year
  Sex: Male
  Weight: 94 kg

DRUGS (6)
  1. JANUVIA [Suspect]
     Indication: TYPE 2 DIABETES MELLITUS
     Dosage: 100 MG, QD
     Route: 048
     Dates: start: 20120523, end: 2012
  2. JANUVIA [Suspect]
     Dosage: UNK
     Dates: start: 2012
  3. OMEPRAZOLE [Concomitant]
     Indication: ABDOMINAL PAIN
     Dosage: 20 MG, QD
     Route: 048
     Dates: start: 20090717
  4. ACETAMINOPHEN [Concomitant]
     Indication: OSTEOARTHRITIS
     Dosage: 1-2 TAB, QD
     Dates: start: 20090417
  5. MOMETASONE FUROATE [Concomitant]
     Indication: PERENNIAL ALLERGY
     Dosage: 2 SPRAYS, QD
     Dates: start: 20071112
  6. MOMETASONE FUROATE [Concomitant]
     Indication: RHINITIS

REACTIONS (3)
  - Rash pruritic [Recovered/Resolved]
  - Dry skin [Unknown]
  - Product quality issue [Unknown]
